FAERS Safety Report 9661104 (Version 2)
Quarter: 2014Q2

REPORT INFORMATION
  Report Type: Spontaneous
  Country: DK (occurrence: CA)
  Receive Date: 20131031
  Receipt Date: 20140409
  Transmission Date: 20141212
  Serious: Yes (Hospitalization, Other)
  Sender: FDA-Public Use
  Company Number: CA-FRI-1000050683

PATIENT
  Sex: Male
  Weight: 4.27 kg

DRUGS (6)
  1. ESCITALOPRAM [Suspect]
     Route: 064
     Dates: start: 2012, end: 2013
  2. CORTICOSTEROIDS [Suspect]
     Route: 064
     Dates: start: 2013, end: 2013
  3. NICOTINE [Suspect]
     Route: 064
     Dates: start: 2012, end: 2012
  4. SUBOXONE [Suspect]
     Dosage: 2 MG
     Route: 064
     Dates: start: 2012, end: 2012
  5. SUBUTEX [Suspect]
     Dosage: 1 DF
     Route: 064
     Dates: start: 2012, end: 2013
  6. SUBUTEX [Suspect]
     Dosage: 1 DF
     Route: 063
     Dates: start: 2013

REACTIONS (4)
  - Drug withdrawal syndrome neonatal [Recovered/Resolved]
  - Exposure during breast feeding [Unknown]
  - Foetal exposure during pregnancy [Recovered/Resolved]
  - Hyperthermia [Unknown]
